FAERS Safety Report 10136997 (Version 1)
Quarter: 2014Q2

REPORT INFORMATION
  Report Type: Spontaneous
  Country: US (occurrence: None)
  Receive Date: 20140428
  Receipt Date: 20140428
  Transmission Date: 20141212
  Serious: Yes (Disabling)
  Sender: FDA-Public Use
  Company Number: None

PATIENT
  Age: 57 Year
  Sex: Male
  Weight: 95.26 kg

DRUGS (2)
  1. CORTICOSTEROID [Suspect]
     Indication: BACK PAIN
     Dosage: BACK/NECK INJECTIONS
  2. CORTICOSTEROID [Suspect]
     Indication: NECK PAIN
     Dosage: BACK/NECK INJECTIONS

REACTIONS (5)
  - Headache [None]
  - Hot flush [None]
  - Night sweats [None]
  - Drug ineffective [None]
  - Hyperhidrosis [None]
